FAERS Safety Report 5268525-7 (Version None)
Quarter: 2007Q1

REPORT INFORMATION
  Report Type: 
  Country: None (occurrence: None)
  Receive Date: 20061213
  Receipt Date: 20040817
  Transmission Date: 20070707
  Serious: Yes (Other)
  Sender: FDA-Public Use
  Company Number: 2004UW17490

PATIENT

DRUGS (1)
  1. IRESSA [Suspect]

REACTIONS (1)
  - PLEURAL EFFUSION [None]
